FAERS Safety Report 6779525-X (Version None)
Quarter: 2010Q2

REPORT INFORMATION
  Report Type: 
  Country: None (occurrence: None)
  Receive Date: 20100618
  Receipt Date: 20100610
  Transmission Date: 20101027
  Serious: Yes (Other)
  Sender: FDA-Public Use
  Company Number: NO-ABBOTT-10P-122-0650551-00

PATIENT
  Sex: Male

DRUGS (9)
  1. SEVOFLURANE [Suspect]
     Indication: SURGERY
     Dates: start: 20100513, end: 20100513
  2. CURACIT [Suspect]
     Indication: SURGERY
     Dates: start: 20100513, end: 20100513
  3. FENTANYL [Suspect]
     Indication: SURGERY
     Dates: start: 20100513, end: 20100513
  4. PERFALGAN [Suspect]
     Indication: SURGERY
     Dates: start: 20100513, end: 20100513
  5. VENOFUNDIN [Suspect]
     Indication: SURGERY
     Dates: start: 20100513, end: 20100513
  6. CHLORHEXIDINE [Suspect]
     Indication: SURGERY
     Dates: start: 20100513, end: 20100513
  7. METRONIDAZOLE [Suspect]
     Indication: SURGERY
     Dates: start: 20100513, end: 20100513
  8. PENTOTHAL [Suspect]
     Indication: SURGERY
     Dates: start: 20100513, end: 20100513
  9. CEFALOTIN [Suspect]
     Indication: SURGERY
     Dates: start: 20100513, end: 20100513

REACTIONS (3)
  - ERYTHEMA [None]
  - LABILE BLOOD PRESSURE [None]
  - TACHYCARDIA [None]
